FAERS Safety Report 21868479 (Version 4)
Quarter: 2024Q4

REPORT INFORMATION
  Report Type: Spontaneous
  Country: JP (occurrence: JP)
  Receive Date: 20230116
  Receipt Date: 20241213
  Transmission Date: 20250114
  Serious: Yes (Hospitalization)
  Sender: TAKEDA
  Company Number: JP-TAKEDA-2022TJP070459

PATIENT
  Age: 17 Year
  Sex: Female

DRUGS (2)
  1. FIRAZYR [Suspect]
     Active Substance: ICATIBANT ACETATE
     Indication: Hereditary angioedema
     Dosage: 30 MILLIGRAM
  2. FIRAZYR [Suspect]
     Active Substance: ICATIBANT ACETATE

REACTIONS (3)
  - Hereditary angioedema [Unknown]
  - Menstruation irregular [Recovered/Resolved]
  - Product use issue [Unknown]
